FAERS Safety Report 22380148 (Version 3)
Quarter: 2023Q4

REPORT INFORMATION
  Report Type: Report from Study
  Country: JP (occurrence: None)
  Receive Date: 20230529
  Receipt Date: 20231027
  Transmission Date: 20240110
  Serious: Yes (Life-Threatening, Hospitalization)
  Sender: FDA-Public Use
  Company Number: 2023A101890

PATIENT
  Age: 80 Year
  Sex: Male
  Weight: 76 kg

DRUGS (7)
  1. IMJUDO [Suspect]
     Active Substance: TREMELIMUMAB\TREMELIMUMAB-ACTL
     Indication: Hepatocellular carcinoma
     Dosage: 300.0MG UNKNOWN
     Route: 042
     Dates: start: 20230419, end: 20230419
  2. IMFINZI [Suspect]
     Active Substance: DURVALUMAB
     Indication: Hepatocellular carcinoma
     Route: 042
     Dates: start: 20230419
  3. ATEZOLIZUMAB [Concomitant]
     Active Substance: ATEZOLIZUMAB
  4. BEVACIZUMAB [Concomitant]
     Active Substance: BEVACIZUMAB
  5. LENVATINIB MESYLATE [Concomitant]
     Active Substance: LENVATINIB MESYLATE
  6. REGORAFENIB [Concomitant]
     Active Substance: REGORAFENIB
  7. CABOZANTINIB S-MALATE [Concomitant]
     Active Substance: CABOZANTINIB S-MALATE

REACTIONS (2)
  - Diarrhoea [Recovered/Resolved]
  - Rash pruritic [Recovering/Resolving]

NARRATIVE: CASE EVENT DATE: 20230501
